FAERS Safety Report 8965404 (Version 2)
Quarter: 2012Q4

REPORT INFORMATION
  Report Type: 
  Country: AU (occurrence: AU)
  Receive Date: 20121213
  Receipt Date: 20121220
  Transmission Date: 20130627
  Serious: Yes (Death)
  Sender: FDA-Public Use
  Company Number: AU-B.I. PHARMACEUTICALS,INC./RIDGEFIELD-2012-AU-01969AU

PATIENT
  Sex: Male

DRUGS (12)
  1. PRADAXA [Suspect]
     Indication: CEREBROVASCULAR ACCIDENT PROPHYLAXIS
     Dosage: 220 mg
  2. PRADAXA [Suspect]
     Indication: ATRIAL FIBRILLATION
  3. LASIX [Concomitant]
     Dosage: 160 mg
  4. DITHIAZIDE [Concomitant]
     Dosage: 50 mg
  5. OROXINE [Concomitant]
     Dosage: 50 mcg
  6. NEXIUM [Concomitant]
     Dosage: 40 mg
  7. SERETIDE [Concomitant]
     Dosage: 125/25 2 bd
  8. ZYLOPRIM [Concomitant]
     Dosage: 100 mg
  9. MEGAFOL [Concomitant]
     Dosage: 500 mcg
  10. FLOMAXTRA [Concomitant]
     Dosage: 400 mcg
  11. SPIRIVA [Concomitant]
     Dosage: 18 mcg
  12. OLMETEC [Concomitant]
     Dosage: 20 mg

REACTIONS (1)
  - Cardiac failure [Fatal]
